FAERS Safety Report 6212290-3 (Version None)
Quarter: 2009Q2

REPORT INFORMATION
  Report Type: 
  Country: None (occurrence: None)
  Receive Date: 20090602
  Receipt Date: 20090526
  Transmission Date: 20091009
  Serious: Yes (Other)
  Sender: FDA-Public Use
  Company Number: JP-MERCK-0905USA03445

PATIENT
  Age: 58 Year
  Sex: Female

DRUGS (6)
  1. FOSAMAX [Suspect]
     Indication: OSTEOPOROSIS
     Route: 048
     Dates: start: 20060224, end: 20090522
  2. MEDROL [Concomitant]
     Route: 048
  3. METHOTREXATE [Concomitant]
     Route: 048
  4. BLOPRESS [Concomitant]
     Indication: HYPERTENSION
     Route: 048
  5. ADALAT [Concomitant]
     Route: 048
  6. LANSOPRAZOLE [Concomitant]
     Route: 048

REACTIONS (1)
  - OSTEOMYELITIS [None]
